FAERS Safety Report 10162163 (Version 2)
Quarter: 2014Q2

REPORT INFORMATION
  Report Type: Spontaneous
  Country: US (occurrence: US)
  Receive Date: 20140509
  Receipt Date: 20140514
  Transmission Date: 20141212
  Serious: Yes (Hospitalization)
  Sender: FDA-Public Use
  Company Number: US-SA-2014SA058543

PATIENT
  Age: 67 Year
  Sex: Female

DRUGS (5)
  1. CEREZYME [Suspect]
     Indication: GAUCHER^S DISEASE
     Dosage: DOSE:4000 UNIT(S)
     Route: 042
     Dates: start: 201404, end: 20140502
  2. TYLENOL [Concomitant]
     Indication: PREMEDICATION
  3. BENADRYL [Concomitant]
     Indication: PREMEDICATION
  4. CORTICOSTEROID NOS [Concomitant]
     Indication: PREMEDICATION
  5. ANTIHISTAMINES [Concomitant]
     Indication: PREMEDICATION

REACTIONS (2)
  - Bone pain [Unknown]
  - Muscle spasms [Recovered/Resolved]
